FAERS Safety Report 5990029-4 (Version None)
Quarter: 2008Q4

REPORT INFORMATION
  Report Type: 
  Country: None (occurrence: None)
  Receive Date: 20081209
  Receipt Date: 20081126
  Transmission Date: 20090506
  Serious: Yes (Hospitalization)
  Sender: FDA-Public Use
  Company Number: 232358K08USA

PATIENT
  Age: 54 Year
  Sex: Female

DRUGS (1)
  1. REBIF [Suspect]
     Indication: MULTIPLE SCLEROSIS
     Dosage: SUBCUTANEOUS
     Route: 058
     Dates: start: 20071102, end: 20081101

REACTIONS (2)
  - GALLBLADDER DISORDER [None]
  - LIVER FUNCTION TEST ABNORMAL [None]
